FAERS Safety Report 4282261-5 (Version None)
Quarter: 2004Q1

REPORT INFORMATION
  Report Type: 
  Country: None (occurrence: None)
  Receive Date: 20040112
  Receipt Date: 20030121
  Transmission Date: 20041129
  Serious: Yes (Other)
  Sender: FDA-Public Use
  Company Number: NSADSS2003003406

PATIENT
  Sex: 0

DRUGS (2)
  1. REOPRO [Suspect]
     Indication: ILL-DEFINED DISORDER
     Dosage: 1 IN 1 AS NECESSARY, INTRAVENOUS DRIP
     Route: 041
     Dates: start: 20030101
  2. HEPARIN [Suspect]
     Indication: ILL-DEFINED DISORDER
     Dates: start: 20030101

REACTIONS (1)
  - THROMBOCYTOPENIA [None]
